FAERS Safety Report 6228092-8 (Version None)
Quarter: 2009Q2

REPORT INFORMATION
  Report Type: 
  Country: None (occurrence: None)
  Receive Date: 20090612
  Receipt Date: 20090603
  Transmission Date: 20091009
  Serious: Yes (Other)
  Sender: FDA-Public Use
  Company Number: US-JNJFOC-20090406820

PATIENT
  Age: 49 Year
  Sex: Female

DRUGS (7)
  1. PREZISTA [Suspect]
     Indication: HIV INFECTION
     Route: 048
  2. RITONAVIR [Concomitant]
     Indication: HIV INFECTION
  3. TENOFOVIR/EMTRICITABINE [Concomitant]
     Indication: HIV INFECTION
  4. VICODIN [Concomitant]
     Indication: DRUG REHABILITATION
  5. METHADONE HCL [Concomitant]
     Indication: DRUG REHABILITATION
  6. SILDENAFIL CITRATE [Concomitant]
     Indication: PULMONARY HYPERTENSION
  7. LASIX [Concomitant]

REACTIONS (7)
  - ABDOMINAL DISTENSION [None]
  - ARTHRALGIA [None]
  - BLISTER [None]
  - LIP BLISTER [None]
  - MUSCULOSKELETAL CHEST PAIN [None]
  - MYALGIA [None]
  - OEDEMA PERIPHERAL [None]
